FAERS Safety Report 8201347-3 (Version None)
Quarter: 2012Q1

REPORT INFORMATION
  Report Type: 
  Country: None (occurrence: None)
  Receive Date: 20120312
  Receipt Date: 20120307
  Transmission Date: 20120608
  Serious: Yes (Hospitalization, Other)
  Sender: FDA-Public Use
  Company Number: US-PFIZER INC-2012061621

PATIENT
  Sex: Female
  Weight: 42.63 kg

DRUGS (7)
  1. XANAX [Suspect]
     Indication: PANIC DISORDER
     Dosage: 0.5 MG, 1X/DAY
     Route: 048
  2. PERCOCET [Concomitant]
     Dosage: UNK
  3. XANAX [Suspect]
     Indication: ANXIETY
     Dosage: 2 MG, THREE TIMES A DAY
     Route: 048
  4. OXYCONTIN [Suspect]
     Indication: OSTEOARTHRITIS
     Dosage: 80 MG, 3X/DAY
  5. OXYCONTIN [Suspect]
     Indication: PAIN
     Dosage: 20 MG, 3X/DAY
  6. XANAX [Suspect]
     Dosage: 0.25 MG, 2X/DAY
     Route: 048
  7. PREVACID [Suspect]
     Dosage: UNK

REACTIONS (9)
  - WITHDRAWAL SYNDROME [None]
  - BLOOD SODIUM DECREASED [None]
  - ANTIBIOTIC RESISTANT STAPHYLOCOCCUS TEST POSITIVE [None]
  - MALAISE [None]
  - MUSCLE TWITCHING [None]
  - ASTHENIA [None]
  - DELUSION [None]
  - GAIT DISTURBANCE [None]
  - OVERDOSE [None]
